FAERS Safety Report 4516206-7 (Version None)
Quarter: 2004Q4

REPORT INFORMATION
  Report Type: 
  Country: None (occurrence: None)
  Receive Date: 20041202
  Receipt Date: 20041129
  Transmission Date: 20050328
  Serious: Yes (Death)
  Sender: FDA-Public Use
  Company Number: IT-BRISTOL-MYERS SQUIBB COMPANY-12776225

PATIENT
  Age: 68 Year
  Sex: Male
  Weight: 74 kg

DRUGS (3)
  1. PLATINEX [Suspect]
     Indication: CARCINOID TUMOUR
     Route: 042
     Dates: start: 20040517, end: 20040519
  2. OCTREOTIDE [Suspect]
     Indication: CARCINOID TUMOUR
     Dosage: DRUG NOT ADMINISTERED
  3. LASTET [Concomitant]
     Indication: CARCINOID TUMOUR
     Dates: start: 20040517, end: 20040519

REACTIONS (1)
  - RENAL FAILURE [None]
